FAERS Safety Report 12246448 (Version 1)
Quarter: 2016Q2

REPORT INFORMATION
  Report Type: Spontaneous
  Country: FR (occurrence: FR)
  Receive Date: 20160407
  Receipt Date: 20160407
  Transmission Date: 20160815
  Serious: Yes (Hospitalization)
  Sender: FDA-Public Use
  Company Number: FR-TEVA-649853ISR

PATIENT
  Age: 55 Year
  Sex: Female

DRUGS (15)
  1. DEPAMIDE [Concomitant]
     Active Substance: VALPROMIDE
  2. OXYNORMORO [Concomitant]
     Active Substance: OXYCODONE
  3. LYRICA [Concomitant]
     Active Substance: PREGABALIN
  4. OXYCONTIN [Concomitant]
     Active Substance: OXYCODONE HYDROCHLORIDE
  5. KARDEGIC [Concomitant]
     Active Substance: ASPIRIN LYSINE
  6. ONDANSETRON [Concomitant]
     Active Substance: ONDANSETRON
  7. PIPERACILLIN AND TAZOBACTAM [Suspect]
     Active Substance: PIPERACILLIN SODIUM\TAZOBACTAM SODIUM
     Route: 042
     Dates: start: 20160122, end: 20160127
  8. CALCIPARINE [Concomitant]
     Active Substance: HEPARIN CALCIUM
  9. CEFTRIAXONE RATIOPHARM [Suspect]
     Active Substance: CEFTRIAXONE
     Route: 042
     Dates: start: 20160127, end: 20160131
  10. ZYVOXID [Suspect]
     Active Substance: LINEZOLID
     Route: 048
     Dates: start: 20160111, end: 20160202
  11. LAROXYL [Concomitant]
     Active Substance: AMITRIPTYLINE
  12. SERESTA [Concomitant]
     Active Substance: OXAZEPAM
  13. PERFALGAN [Concomitant]
     Active Substance: ACETAMINOPHEN
  14. PLAQUENIL [Concomitant]
     Active Substance: HYDROXYCHLOROQUINE SULFATE
  15. INEXIUM [Concomitant]
     Active Substance: ESOMEPRAZOLE

REACTIONS (2)
  - Clostridium difficile colitis [Recovered/Resolved]
  - Acute kidney injury [Recovered/Resolved]

NARRATIVE: CASE EVENT DATE: 20160209
